FAERS Safety Report 5023855-9 (Version None)
Quarter: 2006Q2

REPORT INFORMATION
  Report Type: 
  Country: None (occurrence: None)
  Receive Date: 20060606
  Receipt Date: 20060523
  Transmission Date: 20061013
  Serious: Yes (Hospitalization, Other)
  Sender: FDA-Public Use
  Company Number: US200601005414

PATIENT
  Sex: Female
  Weight: 81.1939 kg

DRUGS (1)
  1. ZYPREXA [Suspect]
     Dates: start: 20020101, end: 20050701

REACTIONS (3)
  - DIABETES MELLITUS [None]
  - MYOCARDIAL ISCHAEMIA [None]
  - PANCREATITIS [None]
